FAERS Safety Report 4695615-X (Version None)
Quarter: 2005Q2

REPORT INFORMATION
  Report Type: 
  Country: None (occurrence: None)
  Receive Date: 20050524
  Receipt Date: 20050429
  Transmission Date: 20051028
  Serious: Yes (Hospitalization)
  Sender: FDA-Public Use
  Company Number: GB-BOEHRINGER INGELHEIM PHARMACEUTICALS, INC.-2005-UK-00730UK

PATIENT
  Age: 87 Year
  Sex: Male
  Weight: 70 kg

DRUGS (8)
  1. SPIRIVA [Suspect]
     Indication: CHRONIC OBSTRUCTIVE PULMONARY DISEASE
     Route: 055
     Dates: start: 20050213, end: 20050314
  2. CO-PROXAMOLE [Concomitant]
     Indication: ARTHRALGIA
     Route: 048
  3. LEVOTHYROXINE [Concomitant]
     Indication: HYPOTHYROIDISM
     Route: 048
  4. SALBUTAMOL [Concomitant]
     Indication: ASTHMA
     Dosage: 200MCG FOUR TIMES DAILY
     Route: 055
  5. SALBUTAMOL [Concomitant]
     Indication: CHRONIC OBSTRUCTIVE PULMONARY DISEASE
  6. BECLOMETHASONE DIPROPIONATE [Concomitant]
     Route: 055
  7. CITALOPRAM [Concomitant]
     Indication: DEPRESSION
  8. OMEPRAZOLE [Concomitant]
     Dosage: 1 DAILY

REACTIONS (1)
  - VENTRICULAR TACHYCARDIA [None]
